FAERS Safety Report 25823580 (Version 1)
Quarter: 2025Q3

REPORT INFORMATION
  Report Type: Report from Study
  Country: US (occurrence: US)
  Receive Date: 20250919
  Receipt Date: 20250919
  Transmission Date: 20251021
  Serious: Yes (Death, Other)
  Sender: ACADIA PHARMACEUTICALS
  Company Number: US-ACADIA PHARMACEUTICALS INC.-ACA-2025-PIM-010340

PATIENT
  Sex: Female

DRUGS (13)
  1. NUPLAZID [Suspect]
     Active Substance: PIMAVANSERIN TARTRATE
     Indication: Parkinson^s disease
     Dosage: 34 MILLIGRAM, QD
     Route: 048
     Dates: start: 20240108, end: 20250915
  2. FAMCICLOVIR [Concomitant]
     Active Substance: FAMCICLOVIR
  3. TRAMADOL [Concomitant]
     Active Substance: TRAMADOL
  4. ACETAMINOPHEN [Concomitant]
     Active Substance: ACETAMINOPHEN
  5. REMERON [Concomitant]
     Active Substance: MIRTAZAPINE
  6. ONDANSETRON [Concomitant]
     Active Substance: ONDANSETRON
  7. AMLODIPINE BESYLATE [Concomitant]
     Active Substance: AMLODIPINE BESYLATE
  8. CARBIDOPA\LEVODOPA [Concomitant]
     Active Substance: CARBIDOPA\LEVODOPA
  9. FOSAMAX [Concomitant]
     Active Substance: ALENDRONATE SODIUM
  10. LEXAPRO [Concomitant]
     Active Substance: ESCITALOPRAM OXALATE
  11. MYRBETRIQ [Concomitant]
     Active Substance: MIRABEGRON
  12. SODIUM BICARBONATE [Concomitant]
     Active Substance: SODIUM BICARBONATE
  13. VITAMIN B12 [Concomitant]
     Active Substance: CYANOCOBALAMIN

REACTIONS (1)
  - Parkinson^s disease [Fatal]
